FAERS Safety Report 10086043 (Version 1)
Quarter: 2014Q2

REPORT INFORMATION
  Report Type: Report from Study
  Country: CA (occurrence: CA)
  Receive Date: 20140418
  Receipt Date: 20140418
  Transmission Date: 20141212
  Serious: Yes (Other)
  Sender: FDA-Public Use
  Company Number: CA-JNJFOC-20140409722

PATIENT
  Age: 20 Year
  Sex: Male
  Weight: 68.2 kg

DRUGS (3)
  1. REMICADE [Suspect]
     Indication: CROHN^S DISEASE
     Route: 042
     Dates: start: 20131210
  2. REMICADE [Suspect]
     Indication: CROHN^S DISEASE
     Route: 042
     Dates: start: 20110315, end: 20130711
  3. CITALOPRAM [Concomitant]
     Route: 048

REACTIONS (1)
  - Visual acuity reduced [Not Recovered/Not Resolved]
